FAERS Safety Report 16140951 (Version 1)
Quarter: 2019Q2

REPORT INFORMATION
  Report Type: Spontaneous
  Country: US (occurrence: US)
  Receive Date: 20190401
  Receipt Date: 20190401
  Transmission Date: 20190711
  Serious: No
  Sender: FDA-Public Use
  Company Number: US-BAYER-2019-060365

PATIENT
  Age: 59 Year
  Sex: Female
  Weight: 50 kg

DRUGS (1)
  1. MIRALAX [Suspect]
     Active Substance: POLYETHYLENE GLYCOL 3350
     Indication: GASTROINTESTINAL DISORDER
     Dosage: UNK , 1 CAP FULL DOSE
     Route: 048
     Dates: start: 201903

REACTIONS (2)
  - Product use issue [None]
  - Product taste abnormal [Unknown]

NARRATIVE: CASE EVENT DATE: 201903
